FAERS Safety Report 25806536 (Version 1)
Quarter: 2025Q3

REPORT INFORMATION
  Report Type: Report from Study
  Country: US (occurrence: US)
  Receive Date: 20250916
  Receipt Date: 20250916
  Transmission Date: 20251021
  Serious: Yes (Hospitalization)
  Sender: BOEHRINGER INGELHEIM
  Company Number: US-BoehringerIngelheim-2023-BI-236987

PATIENT
  Age: 85 Year
  Sex: Male

DRUGS (2)
  1. OFEV [Suspect]
     Active Substance: NINTEDANIB
     Indication: Idiopathic pulmonary fibrosis
     Dates: start: 20230426
  2. OFEV [Suspect]
     Active Substance: NINTEDANIB
     Indication: Interstitial lung disease

REACTIONS (4)
  - Constipation [Not Recovered/Not Resolved]
  - Pneumonia [Unknown]
  - Constipation [Not Recovered/Not Resolved]
  - Diarrhoea [Not Recovered/Not Resolved]

NARRATIVE: CASE EVENT DATE: 20230510
